FAERS Safety Report 23533139 (Version 4)
Quarter: 2024Q1

REPORT INFORMATION
  Report Type: Report from Study
  Country: US (occurrence: US)
  Receive Date: 20240216
  Receipt Date: 20240312
  Transmission Date: 20240409
  Serious: Yes (Death, Life-Threatening, Other)
  Sender: FDA-Public Use
  Company Number: US-PFIZER INC-202400040894

PATIENT
  Age: 67 Year
  Sex: Male

DRUGS (4)
  1. PAXLOVID [Suspect]
     Active Substance: NIRMATRELVIR\RITONAVIR
     Indication: COVID-19 treatment
     Dosage: UNK
     Route: 048
     Dates: start: 20230517, end: 20230520
  2. REMDESIVIR [Concomitant]
     Active Substance: REMDESIVIR
     Dosage: SEVERAL COURSES
     Dates: start: 20230517, end: 20230520
  3. TOCILIZUMAB [Concomitant]
     Active Substance: TOCILIZUMAB
     Dosage: X 2
     Dates: start: 20230517, end: 20230520
  4. LEFLUNOMIDE [Concomitant]
     Active Substance: LEFLUNOMIDE
     Dosage: UNK
     Dates: start: 20230517, end: 20230520

REACTIONS (2)
  - Drug ineffective [Fatal]
  - Infection [Fatal]
